FAERS Safety Report 13653320 (Version 1)
Quarter: 2017Q2

REPORT INFORMATION
  Report Type: Spontaneous
  Country: US (occurrence: US)
  Receive Date: 20170614
  Receipt Date: 20170614
  Transmission Date: 20170830
  Serious: No
  Sender: FDA-Public Use
  Company Number: US-ROCHE-1305335

PATIENT
  Sex: Female

DRUGS (2)
  1. ASPIRIN. [Concomitant]
     Active Substance: ASPIRIN
  2. XELODA [Suspect]
     Active Substance: CAPECITABINE
     Indication: COLON CANCER
     Dosage: 5 TABLETS BY MOUTH EVERY MORNING, AND 4 TABLETS EVERY EVENING FOR?TWO WEEKS ON FOLLOWED BY ONE WEEK
     Route: 048
     Dates: start: 20130728

REACTIONS (3)
  - Dry skin [Unknown]
  - Paraesthesia [Unknown]
  - Diarrhoea [Unknown]
